FAERS Safety Report 7658505-6 (Version None)
Quarter: 2011Q3

REPORT INFORMATION
  Report Type: 
  Country: None (occurrence: None)
  Receive Date: 20110802
  Receipt Date: 20110719
  Transmission Date: 20111222
  Serious: Yes (Other)
  Sender: FDA-Public Use
  Company Number: TPA2011A03775

PATIENT
  Age: 83 Year
  Sex: Female
  Weight: 52.1637 kg

DRUGS (7)
  1. ZOCOR [Concomitant]
  2. FISH OIL (FISH OIL) [Concomitant]
  3. POTASSIUM CITRATE ACID (POTASSIUM CITRATE) [Concomitant]
  4. AMLODIPINE BESYLATE/BENAZEPRIL HCL (BENAZEPRIL HYDROCHLORIDE, AMLODIPI [Concomitant]
  5. ASPIR-81 (ACETYLSALICYLIC ACID) [Concomitant]
  6. LOTREL [Concomitant]
  7. ACTOPLUS MET [Suspect]
     Indication: TYPE 2 DIABETES MELLITUS
     Dosage: 15 MG/850 MG BID, PER ORAL
     Route: 048
     Dates: start: 20101027, end: 20110706

REACTIONS (4)
  - NEPHROLITHIASIS [None]
  - RENAL CYST [None]
  - HAEMATURIA [None]
  - TRANSITIONAL CELL CARCINOMA [None]
